FAERS Safety Report 11326211 (Version 1)
Quarter: 2015Q3

REPORT INFORMATION
  Report Type: Spontaneous
  Country: US (occurrence: US)
  Receive Date: 20150731
  Receipt Date: 20150731
  Transmission Date: 20151125
  Serious: No
  Sender: FDA-Public Use
  Company Number: US-BAYER-2015-390511

PATIENT
  Age: 82 Year
  Sex: Male
  Weight: 79 kg

DRUGS (9)
  1. LISINOPRIL. [Concomitant]
     Active Substance: LISINOPRIL
  2. TRANDOLAPRIL. [Concomitant]
     Active Substance: TRANDOLAPRIL
  3. FUROSEMIDE. [Concomitant]
     Active Substance: FUROSEMIDE
  4. MIRALAX [Suspect]
     Active Substance: POLYETHYLENE GLYCOL 3350
     Indication: CONSTIPATION
     Dosage: 1 DOSE, PRN
     Route: 048
     Dates: end: 20150728
  5. FISH OIL [Concomitant]
     Active Substance: FISH OIL
  6. WARFARIN [Concomitant]
     Active Substance: WARFARIN
  7. BAYER LOW DOSE [Concomitant]
     Active Substance: ASPIRIN
  8. TYLENOL [CHLORPHENAM MAL,DEXTROMET HBR,PARACET,PSEUDOEPH HCL] [Concomitant]
  9. AMIODARONE [Concomitant]
     Active Substance: AMIODARONE

REACTIONS (2)
  - Drug ineffective [Unknown]
  - Faeces soft [Recovered/Resolved]

NARRATIVE: CASE EVENT DATE: 20150725
